FAERS Safety Report 9538945 (Version 2)
Quarter: 2013Q4

REPORT INFORMATION
  Report Type: Report from Study
  Country: JP (occurrence: JP)
  Receive Date: 20130920
  Receipt Date: 20131202
  Transmission Date: 20140711
  Serious: Yes (Other)
  Sender: FDA-Public Use
  Company Number: JP-ASTELLAS-2013US009946

PATIENT
  Sex: 0

DRUGS (4)
  1. ERLOTINIB TABLET [Suspect]
     Indication: NON-SMALL CELL LUNG CANCER
     Dosage: 150 MG, DAYS 2-16 OF 21 DAY CYCLE
     Route: 048
  2. PEMETREXED DISODIUM [Suspect]
     Indication: NON-SMALL CELL LUNG CANCER
     Dosage: 500 MG/M2, ON DAY 1 OF 21 DAY CYCLE
     Route: 042
  3. VITAMIN B12                        /00056201/ [Concomitant]
     Indication: PRODUCT USED FOR UNKNOWN INDICATION
     Dosage: 1 MG, 1 IN 9 WK
     Route: 030
  4. FOLIC ACID [Concomitant]
     Indication: PRODUCT USED FOR UNKNOWN INDICATION
     Dosage: 500 UG, UID/QD
     Route: 048

REACTIONS (1)
  - Febrile neutropenia [Unknown]
